FAERS Safety Report 4943957-2 (Version None)
Quarter: 2006Q1

REPORT INFORMATION
  Report Type: 
  Country: None (occurrence: None)
  Receive Date: 20060313
  Receipt Date: 20060313
  Transmission Date: 20060701
  Serious: Yes (Other)
  Sender: FDA-Public Use
  Company Number: None

PATIENT
  Sex: Male
  Weight: 92 kg

DRUGS (7)
  1. TOPIRAMATE [Suspect]
     Indication: CLUSTER HEADACHE
     Dosage: 25 MG TITRATION PO
     Route: 048
     Dates: start: 20051226, end: 20060307
  2. TOPIRAMATE [Suspect]
     Dosage: 50 MG BID PO
     Route: 048
  3. ATROVENT/ALBUTEROL MDI [Concomitant]
  4. ZOCOR [Concomitant]
  5. PRILOSEC [Concomitant]
  6. CELEXA [Concomitant]
  7. CAFERGOT [Concomitant]

REACTIONS (2)
  - EYE IRRITATION [None]
  - EYE PAIN [None]
